FAERS Safety Report 24601657 (Version 1)
Quarter: 2024Q4

REPORT INFORMATION
  Report Type: Spontaneous
  Country: US (occurrence: US)
  Receive Date: 20241111
  Receipt Date: 20241111
  Transmission Date: 20250115
  Serious: No
  Sender: ALK-ABELLO
  Company Number: US-ALK-ABELLO A/S-2024AA003936

PATIENT

DRUGS (1)
  1. ODACTRA [Suspect]
     Active Substance: DERMATOPHAGOIDES FARINAE\DERMATOPHAGOIDES PTERONYSSINUS
     Indication: Product used for unknown indication
     Dosage: UNK
     Dates: start: 20240925, end: 20241015

REACTIONS (6)
  - Headache [Unknown]
  - Dizziness [Unknown]
  - Pain [Unknown]
  - Tongue discomfort [Unknown]
  - Oral discomfort [Unknown]
  - Mouth swelling [Unknown]
